FAERS Safety Report 23653961 (Version 1)
Quarter: 2024Q1

REPORT INFORMATION
  Report Type: Spontaneous
  Country: MX (occurrence: MX)
  Receive Date: 20240320
  Receipt Date: 20240320
  Transmission Date: 20240410
  Serious: Yes (Other)
  Sender: FDA-Public Use
  Company Number: MX-002147023-NVSC2024MX057505

PATIENT
  Age: 43 Year
  Sex: Female
  Weight: 59 kg

DRUGS (4)
  1. METHYLPHENIDATE HYDROCHLORIDE [Suspect]
     Active Substance: METHYLPHENIDATE HYDROCHLORIDE
     Dosage: 1 DOSAGE FORM (30 MG), DAILY / ONLY WHEN SHE NEEDS TO CONCENTRATE
     Route: 048
     Dates: start: 20230311
  2. METHYLPHENIDATE HYDROCHLORIDE [Suspect]
     Active Substance: METHYLPHENIDATE HYDROCHLORIDE
     Indication: Attention deficit hyperactivity disorder
     Dosage: 1 DOSAGE FORM
     Route: 048
  3. ESOMEPRAZOLE [Concomitant]
     Active Substance: ESOMEPRAZOLE
     Indication: Abdominal discomfort
     Dosage: 1 DOSAGE FORM
     Route: 048
     Dates: start: 20230313
  4. VITAMINS NOS [Concomitant]
     Active Substance: VITAMINS
     Indication: Malnutrition
     Dosage: 1 DOSAGE FORM, DAILY
     Route: 048

REACTIONS (7)
  - Diabetes mellitus [Unknown]
  - Hypothyroidism [Unknown]
  - Dyspnoea [Not Recovered/Not Resolved]
  - Hyperhidrosis [Not Recovered/Not Resolved]
  - Headache [Not Recovered/Not Resolved]
  - Dizziness [Unknown]
  - Incorrect dose administered [Unknown]

NARRATIVE: CASE EVENT DATE: 20230311
